FAERS Safety Report 10230456 (Version 1)
Quarter: 2014Q2

REPORT INFORMATION
  Report Type: Spontaneous
  Country: IT (occurrence: IT)
  Receive Date: 20140611
  Receipt Date: 20140611
  Transmission Date: 20141212
  Serious: Yes (Hospitalization)
  Sender: FDA-Public Use
  Company Number: IT-DSJP-DSE-2014-111060

PATIENT
  Sex: 0

DRUGS (3)
  1. PLAUNAC [Suspect]
     Indication: HYPERTENSION
     Dosage: 40 MG, QD
     Route: 048
  2. PANTORC                            /01263203/ [Concomitant]
     Indication: PROPHYLAXIS
     Dosage: UNK
     Route: 048
  3. GAVISCON [Concomitant]
     Indication: DYSPEPSIA
     Dosage: 1 DF, TID
     Route: 048

REACTIONS (3)
  - Syncope [Recovered/Resolved]
  - Diarrhoea [Recovered/Resolved]
  - Vomiting [Recovered/Resolved]
